FAERS Safety Report 5508844-X (Version None)
Quarter: 2007Q4

REPORT INFORMATION
  Report Type: 
  Country: None (occurrence: None)
  Receive Date: 20071105
  Receipt Date: 20071105
  Transmission Date: 20080405
  Serious: Yes (Disabling)
  Sender: FDA-Public Use
  Company Number: None

PATIENT
  Age: 7 Year
  Sex: Male
  Weight: 27.2158 kg

DRUGS (1)
  1. NOVOLOG [Suspect]
     Dosage: VARIES PER INTAKE  MEAL TIMES  SQ LIFETIME
     Route: 058
     Dates: start: 20050425

REACTIONS (3)
  - DRUG INEFFECTIVE [None]
  - NO THERAPEUTIC RESPONSE [None]
  - PHARMACEUTICAL PRODUCT COMPLAINT [None]
